FAERS Safety Report 9449676 (Version 1)
Quarter: 2013Q3

REPORT INFORMATION
  Report Type: Spontaneous
  Country: US (occurrence: US)
  Receive Date: 20130809
  Receipt Date: 20130809
  Transmission Date: 20140515
  Serious: No
  Sender: FDA-Public Use
  Company Number: US-PFIZER INC-2013230916

PATIENT
  Age: 48 Year
  Sex: Male
  Weight: 86.2 kg

DRUGS (1)
  1. CHANTIX [Suspect]
     Dosage: UNK
     Dates: start: 2013

REACTIONS (3)
  - Malaise [Unknown]
  - Nausea [Unknown]
  - Pain [Unknown]
